FAERS Safety Report 17064516 (Version 1)
Quarter: 2019Q4

REPORT INFORMATION
  Report Type: Spontaneous
  Country: US (occurrence: US)
  Receive Date: 20191024
  Receipt Date: 20191024
  Transmission Date: 20200122
  Serious: Yes (Hospitalization)
  Sender: FDA-Public Use
  Company Number: None

PATIENT
  Sex: Female

DRUGS (5)
  1. EXCEDRIN TAB [Concomitant]
  2. COLLAGEN CREAM [Concomitant]
  3. ELIQUIS [Concomitant]
     Active Substance: APIXABAN
  4. FOLIC ACID 1MG [Concomitant]
     Active Substance: FOLIC ACID
  5. HUMIRA [Suspect]
     Active Substance: ADALIMUMAB
     Indication: CROHN^S DISEASE
     Route: 058
     Dates: start: 20181017

REACTIONS (1)
  - Myocardial infarction [None]
